FAERS Safety Report 17771053 (Version 2)
Quarter: 2020Q3

REPORT INFORMATION
  Report Type: Report from Study
  Country: IL (occurrence: IL)
  Receive Date: 20200512
  Receipt Date: 20200720
  Transmission Date: 20201102
  Serious: Yes (Other)
  Sender: FDA-Public Use
  Company Number: NVSC2020IL076328

PATIENT
  Age: 61 Year
  Sex: Female

DRUGS (2)
  1. KISQALI [Suspect]
     Active Substance: RIBOCICLIB
     Indication: BREAST CANCER
     Dosage: 600 MG, QD
     Route: 048
     Dates: start: 20200227, end: 20200325
  2. KISQALI [Suspect]
     Active Substance: RIBOCICLIB
     Dosage: 600 MG, QD
     Route: 048

REACTIONS (8)
  - Musculoskeletal chest pain [Not Recovered/Not Resolved]
  - Chills [Recovered/Resolved]
  - Concomitant disease progression [Unknown]
  - Peripheral swelling [Recovering/Resolving]
  - Pulmonary mass [Unknown]
  - Electrocardiogram abnormal [Unknown]
  - Nasopharyngitis [Recovered/Resolved]
  - Erythema [Recovering/Resolving]

NARRATIVE: CASE EVENT DATE: 20200310
